FAERS Safety Report 10385619 (Version 1)
Quarter: 2014Q3

REPORT INFORMATION
  Report Type: Spontaneous
  Country: US (occurrence: US)
  Receive Date: 20140814
  Receipt Date: 20140814
  Transmission Date: 20150326
  Serious: No
  Sender: FDA-Public Use
  Company Number: US-TEVA-502182USA

PATIENT
  Age: 41 Year
  Sex: Female
  Weight: 56.3 kg

DRUGS (4)
  1. LEVOTHYROXINE [Concomitant]
     Active Substance: LEVOTHYROXINE
     Indication: BASEDOW^S DISEASE
  2. PATANASE [Concomitant]
     Active Substance: OLOPATADINE HYDROCHLORIDE
     Indication: MULTIPLE ALLERGIES
     Route: 045
  3. PARAGARD T380A [Suspect]
     Active Substance: COPPER
     Indication: CONTRACEPTION
     Route: 015
     Dates: start: 20111017, end: 20140811
  4. CABERGOLINE. [Concomitant]
     Active Substance: CABERGOLINE
     Indication: BLOOD PROLACTIN INCREASED

REACTIONS (3)
  - Menorrhagia [Unknown]
  - Ovarian cyst [Unknown]
  - Dysmenorrhoea [Recovered/Resolved]

NARRATIVE: CASE EVENT DATE: 20140630
